FAERS Safety Report 23913350 (Version 1)
Quarter: 2024Q2

REPORT INFORMATION
  Report Type: Report from Study
  Country: ZA (occurrence: ZA)
  Receive Date: 20240529
  Receipt Date: 20240529
  Transmission Date: 20240716
  Serious: Yes (Death)
  Sender: FDA-Public Use
  Company Number: ZA-ABBVIE-5776956

PATIENT
  Sex: Male

DRUGS (2)
  1. BOTOX [Suspect]
     Active Substance: ONABOTULINUMTOXINA
     Indication: Torticollis
     Dosage: TIME INTERVAL: AS NECESSARY: STRENGTH: 100 IU, FREQUENCY WAS EVERY THREE MONTHS
     Route: 065
     Dates: start: 20231206, end: 20231206
  2. BOTOX [Suspect]
     Active Substance: ONABOTULINUMTOXINA
     Indication: Torticollis
     Dosage: TIME INTERVAL: AS NECESSARY: STRENGTH: 100 IU, FREQUENCY WAS EVERY THREE MONTHS
     Route: 065
     Dates: start: 20230322, end: 20230322

REACTIONS (1)
  - Death [Fatal]
